FAERS Safety Report 25053761 (Version 1)
Quarter: 2025Q1

REPORT INFORMATION
  Report Type: Spontaneous
  Country: US (occurrence: US)
  Receive Date: 20250307
  Receipt Date: 20250307
  Transmission Date: 20250408
  Serious: No
  Sender: SANOFI AVENTIS
  Company Number: US-SANOFI-02434659

PATIENT
  Age: 79 Year
  Sex: Male
  Weight: 90.703 kg

DRUGS (21)
  1. DUPIXENT [Suspect]
     Active Substance: DUPILUMAB
     Indication: Psoriasis
     Dosage: 300 MG, QOW
     Route: 058
  2. DUPIXENT [Suspect]
     Active Substance: DUPILUMAB
     Indication: Psoriatic arthropathy
  3. DUPIXENT [Suspect]
     Active Substance: DUPILUMAB
     Indication: Anxiety disorder
  4. DUPIXENT [Suspect]
     Active Substance: DUPILUMAB
     Indication: Arthritis
  5. DUPIXENT [Suspect]
     Active Substance: DUPILUMAB
     Indication: Depression
  6. DUPIXENT [Suspect]
     Active Substance: DUPILUMAB
     Indication: Hyperlipidaemia
  7. DUPIXENT [Suspect]
     Active Substance: DUPILUMAB
     Indication: Illness
  8. CIMZIA [Concomitant]
     Active Substance: CERTOLIZUMAB PEGOL
  9. OPZELURA [Concomitant]
     Active Substance: RUXOLITINIB PHOSPHATE
  10. CLOBETASOL PROPIONATE [Concomitant]
     Active Substance: CLOBETASOL PROPIONATE
  11. ARTHROTEC [Concomitant]
     Active Substance: DICLOFENAC SODIUM\MISOPROSTOL
  12. VITAMIN D3 [Concomitant]
     Active Substance: CHOLECALCIFEROL
  13. NEXIUM I.V. [Concomitant]
     Active Substance: ESOMEPRAZOLE SODIUM
  14. VESICARE [Concomitant]
     Active Substance: SOLIFENACIN SUCCINATE
  15. FISH OIL [Concomitant]
     Active Substance: FISH OIL
  16. VITAMIN A [Concomitant]
     Active Substance: VITAMIN A
  17. METHOTREXATE [Concomitant]
     Active Substance: METHOTREXATE
  18. FINASTERIDE [Concomitant]
     Active Substance: FINASTERIDE
  19. TAMSULOSIN HYDROCHLORIDE [Concomitant]
     Active Substance: TAMSULOSIN HYDROCHLORIDE
  20. WELLBUTRIN XL [Concomitant]
     Active Substance: BUPROPION HYDROCHLORIDE
  21. LOSARTAN POTASSIUM [Concomitant]
     Active Substance: LOSARTAN POTASSIUM

REACTIONS (4)
  - Injection site erythema [Unknown]
  - Exposure via skin contact [Unknown]
  - Accidental exposure to product [Unknown]
  - Product use in unapproved indication [Unknown]

NARRATIVE: CASE EVENT DATE: 20250228
